FAERS Safety Report 6522086-0 (Version None)
Quarter: 2009Q4

REPORT INFORMATION
  Report Type: 
  Country: None (occurrence: None)
  Receive Date: 20091230
  Receipt Date: 20091223
  Transmission Date: 20100525
  Serious: Yes (Death, Other)
  Sender: FDA-Public Use
  Company Number: PHHY2009CA30871

PATIENT
  Sex: Female

DRUGS (4)
  1. SANDOSTATIN LAR [Suspect]
     Indication: CARCINOID TUMOUR
     Dosage: 60 MG, EVERY 4 WEEKS
     Route: 030
     Dates: start: 19990101, end: 20091209
  2. SANDOSTATIN LAR [Suspect]
     Dosage: 60 MG, EVERY 3 WEEKS
     Route: 030
  3. SANDOSTATIN [Suspect]
     Dosage: 1-2 TIMES PER DAY
     Route: 058
  4. FRAGMIN [Concomitant]
     Indication: DEEP VEIN THROMBOSIS
     Route: 058

REACTIONS (19)
  - ABDOMINAL PAIN [None]
  - ASCITES [None]
  - BLOOD GLUCOSE INCREASED [None]
  - DEATH [None]
  - DIARRHOEA [None]
  - ERYTHEMA [None]
  - FLUID INTAKE REDUCED [None]
  - FLUID REPLACEMENT [None]
  - FLUSHING [None]
  - GENERAL PHYSICAL HEALTH DETERIORATION [None]
  - HYPOPHAGIA [None]
  - INJECTION SITE NODULE [None]
  - JAUNDICE [None]
  - LETHARGY [None]
  - MALAISE [None]
  - OEDEMA [None]
  - OEDEMA PERIPHERAL [None]
  - STENT PLACEMENT [None]
  - TUMOUR COMPRESSION [None]
